FAERS Safety Report 5264354-9 (Version None)
Quarter: 2007Q1

REPORT INFORMATION
  Report Type: 
  Country: None (occurrence: None)
  Receive Date: 20070309
  Receipt Date: 20070301
  Transmission Date: 20070707
  Serious: Yes (Death, Life-Threatening)
  Sender: FDA-Public Use
  Company Number: 2006S1000036

PATIENT
  Age: 13 Day
  Sex: Male

DRUGS (19)
  1. NITRIC OXIDE [Suspect]
     Indication: LUNG DISORDER
     Dosage: 5 PPM; INH_GAS; INH
     Route: 055
     Dates: start: 20060209, end: 20060215
  2. NITRIC OXIDE [Suspect]
     Indication: PROPHYLAXIS
     Dosage: 5 PPM; INH_GAS; INH
     Route: 055
     Dates: start: 20060209, end: 20060215
  3. INOMAX [Suspect]
     Indication: LUNG DISORDER
     Dosage: 20 PPM; INH_GAS; INH
     Route: 055
     Dates: start: 20060215, end: 20060222
  4. INOMAX [Suspect]
     Indication: PROPHYLAXIS
     Dosage: 20 PPM; INH_GAS; INH
     Route: 055
     Dates: start: 20060215, end: 20060222
  5. CEFOTAXIME SODIUM [Concomitant]
  6. VANCOMYCIN [Concomitant]
  7. DOMPERIDONE (DOMPERIDONE) [Concomitant]
  8. TOBRAMYCIN [Concomitant]
  9. RANITIDINE [Concomitant]
  10. FENTANYL [Concomitant]
  11. INSULIN (INSULIN) [Concomitant]
  12. ERYTHROCYTE (NO PREF NAME) [Concomitant]
  13. MEROPENEM (MEROPENEM) [Concomitant]
  14. DOPAMINE HCL [Concomitant]
  15. DOBUTAMINE (DOBUTAMINE) [Concomitant]
  16. EPINEPHRINE [Concomitant]
  17. FUROSEMIDE [Concomitant]
  18. INSULIN (INSULIN) [Concomitant]
  19. RANITIDINE [Concomitant]

REACTIONS (12)
  - ANAEMIA NEONATAL [None]
  - CULTURE POSITIVE [None]
  - DISSEMINATED INTRAVASCULAR COAGULATION [None]
  - GENERALISED OEDEMA [None]
  - HYPERGLYCAEMIA [None]
  - KLEBSIELLA INFECTION [None]
  - NEONATAL DISORDER [None]
  - PERITONEAL DIALYSIS [None]
  - RESPIRATORY DISORDER NEONATAL [None]
  - SEPTIC SHOCK [None]
  - SKIN DISCOLOURATION [None]
  - WHITE BLOOD CELL COUNT DECREASED [None]
